FAERS Safety Report 7571964-2 (Version None)
Quarter: 2011Q2

REPORT INFORMATION
  Report Type: 
  Country: None (occurrence: None)
  Receive Date: 20110620
  Receipt Date: 20110603
  Transmission Date: 20111010
  Serious: Yes (Hospitalization, Other)
  Sender: FDA-Public Use
  Company Number: 2011MA006769

PATIENT
  Age: 42 Year
  Sex: Female

DRUGS (4)
  1. CLOBAZEPAM [Concomitant]
  2. ETHANOL [Concomitant]
  3. PHENYTOIN [Suspect]
     Indication: INTENTIONAL OVERDOSE
  4. LORAZEPAM [Concomitant]

REACTIONS (8)
  - HEPATIC ENZYME INCREASED [None]
  - COORDINATION ABNORMAL [None]
  - DEPRESSED LEVEL OF CONSCIOUSNESS [None]
  - DISORIENTATION [None]
  - DYSARTHRIA [None]
  - HYPERREFLEXIA [None]
  - NYSTAGMUS [None]
  - MULTIPLE DRUG OVERDOSE INTENTIONAL [None]
